FAERS Safety Report 9248273 (Version 5)
Quarter: 2014Q4

REPORT INFORMATION
  Report Type: Spontaneous
  Country: US (occurrence: US)
  Receive Date: 20130423
  Receipt Date: 20141013
  Transmission Date: 20150529
  Serious: Yes (Hospitalization, Other)
  Sender: FDA-Public Use
  Company Number: US-BAYER-2013-049697

PATIENT
  Age: 35 Year
  Sex: Female
  Weight: 61.22 kg

DRUGS (2)
  1. WELLBUTRIN [Concomitant]
     Active Substance: BUPROPION HYDROCHLORIDE
  2. MIRENA [Suspect]
     Active Substance: LEVONORGESTREL
     Indication: CONTRACEPTION
     Dosage: 20 MCG/24HR, CONT
     Route: 015
     Dates: start: 20060828, end: 20100526

REACTIONS (14)
  - Psychogenic pain disorder [None]
  - Menorrhagia [None]
  - Anhedonia [None]
  - Device issue [None]
  - Device dislocation [None]
  - Injury [None]
  - Abdominal pain lower [None]
  - Uterine perforation [None]
  - Post procedural haemorrhage [None]
  - Pain [None]
  - Emotional distress [None]
  - Device dislocation [None]
  - Depression [None]
  - Anxiety [None]

NARRATIVE: CASE EVENT DATE: 2010
